FAERS Safety Report 20775188 (Version 1)
Quarter: 2022Q2

REPORT INFORMATION
  Report Type: Spontaneous
  Country: US (occurrence: None)
  Receive Date: 20220502
  Receipt Date: 20220502
  Transmission Date: 20220720
  Serious: No
  Sender: FDA-Public Use
  Company Number: None

PATIENT
  Sex: Female

DRUGS (1)
  1. OTEZLA [Suspect]
     Active Substance: APREMILAST
     Indication: Psoriasis
     Dosage: OTHER QUANTITY : 1 TABLET ;?FREQUENCY : TWICE A DAY;?
     Route: 048
     Dates: start: 20220411, end: 20220501

REACTIONS (1)
  - Adverse drug reaction [None]
